FAERS Safety Report 10990265 (Version 1)
Quarter: 2015Q2

REPORT INFORMATION
  Report Type: Spontaneous
  Country: US (occurrence: US)
  Receive Date: 20150406
  Receipt Date: 20150406
  Transmission Date: 20150821
  Serious: No
  Sender: FDA-Public Use
  Company Number: US-JNJFOC-20150211080

PATIENT

DRUGS (1)
  1. INVEGA SUSTENNA [Suspect]
     Active Substance: PALIPERIDONE PALMITATE
     Indication: PSYCHOTIC DISORDER
     Route: 030

REACTIONS (4)
  - Gynaecomastia [Unknown]
  - Product use issue [Unknown]
  - Blood prolactin increased [Unknown]
  - Hyperprolactinaemia [Unknown]
